FAERS Safety Report 6249688-3 (Version None)
Quarter: 2009Q2

REPORT INFORMATION
  Report Type: 
  Country: None (occurrence: None)
  Receive Date: 20090624
  Receipt Date: 20090609
  Transmission Date: 20091009
  Serious: Yes (Other)
  Sender: FDA-Public Use
  Company Number: 2009001746

PATIENT
  Age: 43 Year
  Sex: Male

DRUGS (1)
  1. TARCEVA [Suspect]
     Indication: LUNG NEOPLASM MALIGNANT
     Dosage: (150 MG,QD),ORAL
     Route: 048
     Dates: start: 20090505

REACTIONS (6)
  - DYSPHAGIA [None]
  - EYE OEDEMA [None]
  - JAW DISORDER [None]
  - LARYNGEAL OEDEMA [None]
  - OEDEMA MOUTH [None]
  - RASH [None]
